FAERS Safety Report 13534670 (Version 1)
Quarter: 2017Q2

REPORT INFORMATION
  Report Type: Spontaneous
  Country: US (occurrence: US)
  Receive Date: 20170510
  Receipt Date: 20170510
  Transmission Date: 20170830
  Serious: Yes (Other)
  Sender: FDA-Public Use
  Company Number: None

PATIENT
  Age: 46 Year
  Sex: Male

DRUGS (2)
  1. ZOPENT [Suspect]
     Active Substance: PANTOPRAZOLE SODIUM
  2. PENTAZOCINE [Suspect]
     Active Substance: PENTAZOCINE
     Route: 058

REACTIONS (6)
  - Fibula fracture [None]
  - Limb injury [None]
  - Tibia fracture [None]
  - Femur fracture [None]
  - Drug use disorder [None]
  - Pain [None]

NARRATIVE: CASE EVENT DATE: 20090829
